FAERS Safety Report 8597035-4 (Version None)
Quarter: 2012Q3

REPORT INFORMATION
  Report Type: 
  Country: None (occurrence: None)
  Receive Date: 20120816
  Receipt Date: 20120808
  Transmission Date: 20120928
  Serious: Yes (Other)
  Sender: FDA-Public Use
  Company Number: BR-AMGEN-BRASP2012051179

PATIENT
  Age: 65 Year
  Sex: Female
  Weight: 58 kg

DRUGS (5)
  1. BENEGRIP [Concomitant]
     Dosage: UNK
  2. FOLIC ACID [Concomitant]
     Indication: ANAEMIA
     Dosage: UNK
  3. ENBREL [Suspect]
     Indication: RHEUMATOID ARTHRITIS
     Dosage: 50 MG, ONCE WEEKLY
     Route: 058
     Dates: start: 20111001, end: 20120422
  4. NIMESULIDE [Concomitant]
     Dosage: UNK
  5. PREDNISONE TAB [Concomitant]
     Dosage: UNK

REACTIONS (3)
  - ABDOMINAL PAIN [None]
  - APPENDICITIS [None]
  - INFECTION [None]
